FAERS Safety Report 10475491 (Version 1)
Quarter: 2014Q3

REPORT INFORMATION
  Report Type: Spontaneous
  Country: US (occurrence: None)
  Receive Date: 20140924
  Receipt Date: 20140924
  Transmission Date: 20150326
  Serious: Yes (Hospitalization)
  Sender: FDA-Public Use
  Company Number: None

PATIENT
  Age: 73 Year
  Sex: Male
  Weight: 97 kg

DRUGS (3)
  1. WARFARIN [Suspect]
     Active Substance: WARFARIN
     Indication: ATRIAL FIBRILLATION
     Dosage: 4MG M,W,TH,SAT PO
     Route: 048
  2. PHOSPHATE [Concomitant]
     Active Substance: UNSPECIFIED INGREDIENT
  3. SENSIPAR [Concomitant]
     Active Substance: CINACALCET HYDROCHLORIDE

REACTIONS (8)
  - Gangrene [None]
  - International normalised ratio increased [None]
  - Peripheral ischaemia [None]
  - Sepsis [None]
  - Asthenia [None]
  - Decreased appetite [None]
  - Abasia [None]
  - Dysstasia [None]

NARRATIVE: CASE EVENT DATE: 20140421
